FAERS Safety Report 7059990-3 (Version None)
Quarter: 2010Q4

REPORT INFORMATION
  Report Type: 
  Country: None (occurrence: None)
  Receive Date: 20101025
  Receipt Date: 20101018
  Transmission Date: 20110411
  Serious: Yes (Death, Other)
  Sender: FDA-Public Use
  Company Number: BR-ROCHE-556333

PATIENT

DRUGS (5)
  1. MYCOPHENOLATE MOFETIL [Suspect]
     Dosage: PREOPERATIVE DOSE AS WELL AS THE DURATION OF THE STUDY.
     Route: 048
  2. TACROLIMUS [Suspect]
     Dosage: 0.15-0.20 MG/KG/D IN TWO DIVIDED DOSES
     Route: 048
  3. METHYLPREDNISOLONE [Suspect]
     Route: 042
  4. PREDNISONE [Suspect]
     Route: 048
  5. MYCOPHENOLATE MOFETIL [Suspect]
     Dosage: PREOPERATIVE DOSE AS WELL AS THE DURATION OF THE STUDY.
     Route: 048

REACTIONS (10)
  - DIABETES MELLITUS [None]
  - HYPERCHOLESTEROLAEMIA [None]
  - HYPERTENSION [None]
  - HYPERTRIGLYCERIDAEMIA [None]
  - INFECTION [None]
  - LEUKOPENIA [None]
  - MULTIPLE MYELOMA [None]
  - NEOPLASM MALIGNANT [None]
  - SEPSIS [None]
  - TRANSPLANT REJECTION [None]
